FAERS Safety Report 25662155 (Version 1)
Quarter: 2025Q3

REPORT INFORMATION
  Report Type: Spontaneous
  Country: US (occurrence: US)
  Receive Date: 20250810
  Receipt Date: 20250810
  Transmission Date: 20251020
  Serious: No
  Sender: ELI LILLY AND COMPANY
  Company Number: US-ELI_LILLY_AND_COMPANY-US202508005921

PATIENT
  Age: 66 Year
  Sex: Male

DRUGS (28)
  1. ZEPBOUND [Suspect]
     Active Substance: TIRZEPATIDE
     Indication: Overweight
     Route: 065
  2. ZEPBOUND [Suspect]
     Active Substance: TIRZEPATIDE
     Indication: Overweight
     Route: 065
  3. ZEPBOUND [Suspect]
     Active Substance: TIRZEPATIDE
     Indication: Overweight
     Route: 065
  4. ZEPBOUND [Suspect]
     Active Substance: TIRZEPATIDE
     Indication: Overweight
     Route: 065
  5. ZEPBOUND [Suspect]
     Active Substance: TIRZEPATIDE
     Indication: Blood glucose increased
  6. ZEPBOUND [Suspect]
     Active Substance: TIRZEPATIDE
     Indication: Blood glucose increased
  7. ZEPBOUND [Suspect]
     Active Substance: TIRZEPATIDE
     Indication: Blood glucose increased
  8. ZEPBOUND [Suspect]
     Active Substance: TIRZEPATIDE
     Indication: Blood glucose increased
  9. ZEPBOUND [Suspect]
     Active Substance: TIRZEPATIDE
     Indication: Cardiac disorder
  10. ZEPBOUND [Suspect]
     Active Substance: TIRZEPATIDE
     Indication: Cardiac disorder
  11. ZEPBOUND [Suspect]
     Active Substance: TIRZEPATIDE
     Indication: Cardiac disorder
  12. ZEPBOUND [Suspect]
     Active Substance: TIRZEPATIDE
     Indication: Cardiac disorder
  13. ZEPBOUND [Suspect]
     Active Substance: TIRZEPATIDE
     Indication: Computerised tomogram heart abnormal
  14. ZEPBOUND [Suspect]
     Active Substance: TIRZEPATIDE
     Indication: Computerised tomogram heart abnormal
  15. ZEPBOUND [Suspect]
     Active Substance: TIRZEPATIDE
     Indication: Computerised tomogram heart abnormal
  16. ZEPBOUND [Suspect]
     Active Substance: TIRZEPATIDE
     Indication: Computerised tomogram heart abnormal
  17. ZEPBOUND [Suspect]
     Active Substance: TIRZEPATIDE
     Indication: Hypertension
  18. ZEPBOUND [Suspect]
     Active Substance: TIRZEPATIDE
     Indication: Hypertension
  19. ZEPBOUND [Suspect]
     Active Substance: TIRZEPATIDE
     Indication: Hypertension
  20. ZEPBOUND [Suspect]
     Active Substance: TIRZEPATIDE
     Indication: Hypertension
  21. ZEPBOUND [Suspect]
     Active Substance: TIRZEPATIDE
     Indication: Blood cholesterol abnormal
  22. ZEPBOUND [Suspect]
     Active Substance: TIRZEPATIDE
     Indication: Blood cholesterol abnormal
  23. ZEPBOUND [Suspect]
     Active Substance: TIRZEPATIDE
     Indication: Blood cholesterol abnormal
  24. ZEPBOUND [Suspect]
     Active Substance: TIRZEPATIDE
     Indication: Blood cholesterol abnormal
  25. ZEPBOUND [Suspect]
     Active Substance: TIRZEPATIDE
     Indication: Lipoprotein (a) abnormal
  26. ZEPBOUND [Suspect]
     Active Substance: TIRZEPATIDE
     Indication: Lipoprotein (a) abnormal
  27. ZEPBOUND [Suspect]
     Active Substance: TIRZEPATIDE
     Indication: Lipoprotein (a) abnormal
  28. ZEPBOUND [Suspect]
     Active Substance: TIRZEPATIDE
     Indication: Lipoprotein (a) abnormal

REACTIONS (1)
  - Incorrect dose administered [Unknown]
